FAERS Safety Report 9026566 (Version 1)
Quarter: 2012Q4

REPORT INFORMATION
  Report Type: Spontaneous
  Country: US (occurrence: None)
  Receive Date: 20121214
  Receipt Date: 20121214
  Transmission Date: 20130627
  Serious: No
  Sender: FDA-Public Use
  Company Number: None

PATIENT
  Age: 49 Year
  Sex: Female

DRUGS (1)
  1. REBIF [Suspect]
     Indication: MS
     Dosage: 44mcg tiw subc
     Route: 058
     Dates: start: 20110913

REACTIONS (3)
  - Injection site pain [None]
  - Injection site haemorrhage [None]
  - Injection site bruising [None]
